FAERS Safety Report 15707181 (Version 2)
Quarter: 2018Q4

REPORT INFORMATION
  Report Type: Spontaneous
  Country: FR (occurrence: FR)
  Receive Date: 20181210
  Receipt Date: 20181219
  Transmission Date: 20190205
  Serious: Yes (Hospitalization)
  Sender: FDA-Public Use
  Company Number: PHHY2018FR174923

PATIENT
  Age: 63 Year
  Sex: Male

DRUGS (3)
  1. PARACETAMOL [Suspect]
     Active Substance: ACETAMINOPHEN
     Indication: SUICIDE ATTEMPT
     Dosage: 50 DF, QD
     Route: 048
     Dates: start: 20170709, end: 20170709
  2. STALEVO [Suspect]
     Active Substance: CARBIDOPA\ENTACAPONE\LEVODOPA
     Indication: SUICIDE ATTEMPT
     Dosage: 50 DF, QD (STRENGTH: 150/37.5/200 MG)
     Route: 048
     Dates: start: 20170709, end: 20170709
  3. PARACETAMOL [Suspect]
     Active Substance: ACETAMINOPHEN
     Dosage: 4 DF, QD
     Route: 048
     Dates: start: 20170709, end: 20170709

REACTIONS (10)
  - Language disorder [Recovered/Resolved]
  - Mydriasis [Recovered/Resolved]
  - Tachypnoea [Recovered/Resolved]
  - Sinus tachycardia [Recovered/Resolved]
  - Confusional state [Recovered/Resolved]
  - Abdominal pain [Recovered/Resolved]
  - Mood altered [Recovered/Resolved]
  - Toxicity to various agents [Recovered/Resolved]
  - Disorientation [Recovered/Resolved]
  - Suicide attempt [Recovered/Resolved]

NARRATIVE: CASE EVENT DATE: 20170709
